FAERS Safety Report 12880635 (Version 1)
Quarter: 2016Q4

REPORT INFORMATION
  Report Type: Spontaneous
  Country: US (occurrence: US)
  Receive Date: 20161021
  Receipt Date: 20161021
  Transmission Date: 20170207
  Serious: No
  Sender: FDA-Public Use
  Company Number: None

PATIENT
  Age: 58 Year
  Sex: Male

DRUGS (1)
  1. DOFETILIDE 0.5 MG PFIZER [Suspect]
     Active Substance: DOFETILIDE
     Indication: ATRIAL FIBRILLATION
     Route: 048
     Dates: start: 20161012

REACTIONS (3)
  - Product substitution issue [None]
  - Heart rate increased [None]
  - Cardiac disorder [None]

NARRATIVE: CASE EVENT DATE: 20161018
